FAERS Safety Report 9120546 (Version 2)
Quarter: 2013Q1

REPORT INFORMATION
  Report Type: Report from Study
  Country: US (occurrence: US)
  Receive Date: 20130226
  Receipt Date: 20130308
  Transmission Date: 20140127
  Serious: Yes (Other)
  Sender: FDA-Public Use
  Company Number: US-ROCHE-1193838

PATIENT
  Age: 79 Year
  Sex: Female

DRUGS (9)
  1. LUCENTIS [Suspect]
     Indication: AGE-RELATED MACULAR DEGENERATION
     Dosage: 0.5 MG PER 0.05 ML
     Route: 042
     Dates: start: 20121018, end: 20121018
  2. OMEPRAZOLE [Concomitant]
  3. TRAMADOL [Concomitant]
  4. MELOXICAM [Concomitant]
  5. PREDNISONE [Concomitant]
  6. SYNTHROID [Concomitant]
  7. METOPROLOL TARTRATE [Concomitant]
  8. ADVAIR DISKUS [Concomitant]
  9. SPIRIVA [Concomitant]

REACTIONS (3)
  - Infection [Unknown]
  - Blindness [Unknown]
  - Endophthalmitis [Recovered/Resolved]
